FAERS Safety Report 7980312-5 (Version None)
Quarter: 2011Q4

REPORT INFORMATION
  Report Type: 
  Country: None (occurrence: None)
  Receive Date: 20111212
  Receipt Date: 20111205
  Transmission Date: 20120403
  Serious: Yes (Congenital Anomaly, Other)
  Sender: FDA-Public Use
  Company Number: GER/GER/11/0022246

PATIENT
  Age: 0 Year
  Sex: Female
  Weight: 3.5 kg

DRUGS (3)
  1. BERLINSULIN H NORMAL (INSULIN HUMAN) [Concomitant]
  2. BERLINSULIN H BASAL (INSULIN HUMAN INJECTION, ISOPHANE) [Concomitant]
  3. LAMOTRIGINE [Suspect]
     Indication: PRODUCT USED FOR UNKNOWN INDICATION
     Dosage: 50 MG, 1 D, TRANSPLACENTAL
     Route: 064

REACTIONS (3)
  - PULMONARY VALVE INCOMPETENCE [None]
  - CAESAREAN SECTION [None]
  - MATERNAL DRUGS AFFECTING FOETUS [None]
